FAERS Safety Report 4562622-7 (Version None)
Quarter: 2005Q1

REPORT INFORMATION
  Report Type: 
  Country: None (occurrence: None)
  Receive Date: 20050124
  Receipt Date: 20050106
  Transmission Date: 20050727
  Serious: Yes (Other)
  Sender: FDA-Public Use
  Company Number: 2004117950

PATIENT
  Age: 60 Year
  Sex: Female

DRUGS (12)
  1. CELEBREX [Suspect]
     Indication: OSTEOARTHRITIS
     Dosage: 400 MG (200 MG, 2 IN 1 D), ORAL
     Route: 048
     Dates: start: 20031101, end: 20040701
  2. ROFECOXIB [Suspect]
     Indication: OSTEOARTHRITIS
     Dosage: 1 D, ORAL
     Route: 048
     Dates: start: 20031101, end: 20040701
  3. FLUPIRTINE MALEATE (FLUPIRTINE MALEATE) [Suspect]
     Indication: ILL-DEFINED DISORDER
     Dosage: 3 IN 1 D, ORAL
     Route: 048
  4. DICLOFENAC SODIUM [Concomitant]
  5. DIAZEPAM [Concomitant]
  6. ESCLEROBIN (PYRICARBATE, PYRITINOL, TOCOPHERYL NICOTINATE) [Concomitant]
  7. NANDROLOEN DECANOATE (NANDROLONE DECANOATE) [Concomitant]
  8. TIOSCINA (ESCIN, THIOCOLCHICOSIDE) [Concomitant]
  9. NIMESULIDE (NIMESULIDE) [Concomitant]
  10. DIAZEPAM [Concomitant]
  11. TRAMADOL HCL [Concomitant]
  12. ALL OTHER THERAPEUTIC PRODUCTS (ALL OTHER THEAPEUTIC PRODUCTS) [Concomitant]

REACTIONS (4)
  - BLOOD PRESSURE FLUCTUATION [None]
  - CHEST PAIN [None]
  - HEART RATE INCREASED [None]
  - PALPITATIONS [None]
